FAERS Safety Report 23784719 (Version 1)
Quarter: 2024Q2

REPORT INFORMATION
  Report Type: Spontaneous
  Country: NL (occurrence: NL)
  Receive Date: 20240425
  Receipt Date: 20240425
  Transmission Date: 20240715
  Serious: Yes (Other)
  Sender: FDA-Public Use
  Company Number: NL-ZAMBON-202401209NLD

PATIENT

DRUGS (2)
  1. FOSFOMYCIN TROMETHAMINE [Suspect]
     Active Substance: FOSFOMYCIN TROMETHAMINE
     Indication: Cystitis
     Dosage: 3 G, DAILY
     Route: 065
     Dates: start: 20240115
  2. NITROFURANTOIN [Suspect]
     Active Substance: NITROFURANTOIN
     Indication: Cystitis
     Dosage: 100 MG
     Route: 065
     Dates: start: 20240101

REACTIONS (2)
  - Chlamydial infection [Recovered/Resolved]
  - Herpes simplex [Recovered/Resolved]
